FAERS Safety Report 7952564-9 (Version None)
Quarter: 2011Q4

REPORT INFORMATION
  Report Type: 
  Country: None (occurrence: None)
  Receive Date: 20111201
  Receipt Date: 20111124
  Transmission Date: 20120403
  Serious: Yes (Other)
  Sender: FDA-Public Use
  Company Number: PHHO2011GB019857

PATIENT
  Sex: Female

DRUGS (7)
  1. PEGASYS [Suspect]
     Indication: HEPATITIS C
     Dosage: 180 UG, QW
     Route: 065
     Dates: start: 20111031
  2. BLINDED DEB025 [Suspect]
     Dosage: 3/2 TABLETS
     Route: 048
     Dates: start: 20111031
  3. BLINDED NO TREATMENT RECEIVED [Suspect]
     Dosage: 3/2 TABLETS
     Route: 048
     Dates: start: 20111031
  4. LANSOPRAZOLE [Suspect]
     Indication: GASTROOESOPHAGEAL REFLUX DISEASE
     Dosage: 30 MG, QD
     Route: 065
     Dates: start: 20011020
  5. OMEPRAZOLE [Suspect]
     Indication: GASTROOESOPHAGEAL REFLUX DISEASE
  6. BLINDED PLACEBO [Suspect]
     Dosage: 3/2 TABLETS
     Route: 048
     Dates: start: 20111031
  7. RIBAVIRIN [Suspect]
     Indication: HEPATITIS C
     Dosage: 600 MG, BID
     Route: 065
     Dates: start: 20111031

REACTIONS (3)
  - MUSCULOSKELETAL STIFFNESS [None]
  - HEADACHE [None]
  - HYPERTENSION [None]
